FAERS Safety Report 6832007-9 (Version None)
Quarter: 2010Q3

REPORT INFORMATION
  Report Type: 
  Country: None (occurrence: None)
  Receive Date: 20100712
  Receipt Date: 20100701
  Transmission Date: 20110219
  Serious: Yes (Death, Hospitalization)
  Sender: FDA-Public Use
  Company Number: AU-ROCHE-712538

PATIENT
  Age: 52 Year
  Sex: Female

DRUGS (1)
  1. AVASTIN [Suspect]
     Indication: RECTAL CANCER
     Route: 065

REACTIONS (4)
  - ABDOMINAL PAIN [None]
  - DEATH [None]
  - MALIGNANT NEOPLASM PROGRESSION [None]
  - RECTAL PERFORATION [None]
